FAERS Safety Report 4771043-3 (Version None)
Quarter: 2005Q3

REPORT INFORMATION
  Report Type: 
  Country: None (occurrence: None)
  Receive Date: 20050914
  Receipt Date: 20050905
  Transmission Date: 20060218
  Serious: Yes (Other)
  Sender: FDA-Public Use
  Company Number: 2005123973

PATIENT
  Age: 50 Year
  Sex: Male

DRUGS (1)
  1. VIRLIX (CETIRIZINE) [Suspect]
     Indication: PHOTOSENSITIVITY REACTION
     Dosage: 10 MG, ORAL
     Route: 048
     Dates: end: 20050801

REACTIONS (1)
  - ELECTROCARDIOGRAM QT PROLONGED [None]
